FAERS Safety Report 7362958-0 (Version None)
Quarter: 2011Q1

REPORT INFORMATION
  Report Type: 
  Country: None (occurrence: None)
  Receive Date: 20110321
  Receipt Date: 20071214
  Transmission Date: 20110831
  Serious: No
  Sender: FDA-Public Use
  Company Number: 2007BI026761

PATIENT
  Sex: Female

DRUGS (2)
  1. TYSABRI [Suspect]
     Route: 042
     Dates: start: 20071116, end: 20080129
  2. TYSABRI [Suspect]
     Indication: MULTIPLE SCLEROSIS
     Route: 042
     Dates: start: 20050201, end: 20050201

REACTIONS (6)
  - INFUSION RELATED REACTION [None]
  - HYPERSENSITIVITY [None]
  - THROAT TIGHTNESS [None]
  - MULTIPLE ALLERGIES [None]
  - PRURITUS GENERALISED [None]
  - ARTHRALGIA [None]
